FAERS Safety Report 18846197 (Version 1)
Quarter: 2021Q1

REPORT INFORMATION
  Report Type: Report from Study
  Country: US (occurrence: US)
  Receive Date: 20210203
  Receipt Date: 20210203
  Transmission Date: 20210419
  Serious: No
  Sender: FDA-Public Use
  Company Number: US-EXELIXIS-CABO-20030083

PATIENT
  Sex: Male

DRUGS (3)
  1. CABOMETYX [Suspect]
     Active Substance: CABOZANTINIB S-MALATE
     Dosage: 40 MG, 4 DAYS/WEEK
     Route: 048
  2. CABOMETYX [Suspect]
     Active Substance: CABOZANTINIB S-MALATE
     Dosage: 40 MG, 3DAYS/WEEK
     Route: 048
  3. CABOMETYX [Suspect]
     Active Substance: CABOZANTINIB S-MALATE
     Indication: RENAL CELL CARCINOMA
     Dosage: DAILY DOSE (DOSE UNKNOWN)
     Route: 048
     Dates: start: 201609

REACTIONS (12)
  - Neuropathy peripheral [Unknown]
  - Stomatitis [Recovered/Resolved]
  - Dry skin [Unknown]
  - Decreased appetite [Recovering/Resolving]
  - Blood pressure increased [Recovering/Resolving]
  - Dry mouth [Unknown]
  - Malignant neoplasm progression [Unknown]
  - Inappropriate schedule of product administration [Unknown]
  - Blister [Not Recovered/Not Resolved]
  - Parosmia [Unknown]
  - Taste disorder [Unknown]
  - Nausea [Unknown]
